FAERS Safety Report 25785587 (Version 3)
Quarter: 2025Q4

REPORT INFORMATION
  Report Type: Spontaneous
  Country: EU (occurrence: EU)
  Receive Date: 20250910
  Receipt Date: 20251210
  Transmission Date: 20260118
  Serious: Yes (Hospitalization, Other)
  Sender: AUROBINDO
  Company Number: EU-MLMSERVICE-20250820-PI617520-00290-1

PATIENT
  Age: 72 Year
  Sex: Female

DRUGS (15)
  1. TRANEXAMIC ACID [Suspect]
     Active Substance: TRANEXAMIC ACID
     Indication: Premedication
     Dosage: 1 GRAM
  2. TRANEXAMIC ACID [Suspect]
     Active Substance: TRANEXAMIC ACID
     Dosage: 1 GRAM
  3. ACETAMINOPHEN [Suspect]
     Active Substance: ACETAMINOPHEN
     Indication: Premedication
     Dosage: 1 GRAM
     Route: 065
  4. ONDANSETRON [Suspect]
     Active Substance: ONDANSETRON
     Indication: Premedication
     Dosage: 4 MILLIGRAM
  5. PANTOPRAZOLE [Suspect]
     Active Substance: PANTOPRAZOLE
     Indication: Product used for unknown indication
     Dosage: 40 MILLIGRAM
     Route: 065
  6. ROPIVACAINE [Suspect]
     Active Substance: ROPIVACAINE
     Indication: Nerve block
     Dosage: 37.5 MILLIGRAM
  7. ROPIVACAINE [Suspect]
     Active Substance: ROPIVACAINE
     Indication: Anaesthesia
     Dosage: 15 ML (56.5 MG)
  8. DEXAMETHASONE [Suspect]
     Active Substance: DEXAMETHASONE
     Indication: Premedication
     Dosage: 20 MILLIGRAM
  9. DEXAMETHASONE [Suspect]
     Active Substance: DEXAMETHASONE
     Dosage: 20 MILLIGRAM
  10. CEFAZOLIN SODIUM [Suspect]
     Active Substance: CEFAZOLIN SODIUM
     Indication: Antibiotic prophylaxis
     Dosage: 2 GRAM
     Route: 065
  11. MEPIVACAINE [Concomitant]
     Active Substance: MEPIVACAINE HYDROCHLORIDE
     Indication: Nerve block
     Dosage: 100 MILLIGRAM
  12. DEXMEDETOMIDINE [Concomitant]
     Active Substance: DEXMEDETOMIDINE
     Indication: Sedative therapy
     Route: 065
  13. MIDAZOLAM [Concomitant]
     Active Substance: MIDAZOLAM
     Indication: Anxiety
     Dosage: 2 MILLIGRAM
  14. VALPROATE SODIUM [Concomitant]
     Active Substance: VALPROATE SODIUM
     Indication: Generalised tonic-clonic seizure
     Dosage: UNK
     Route: 065
  15. PROPOFOL [Concomitant]
     Active Substance: PROPOFOL
     Indication: Nerve block
     Dosage: UNK
     Route: 065

REACTIONS (2)
  - Enterocolitis [Recovered/Resolved]
  - Drug ineffective [Unknown]

NARRATIVE: CASE EVENT DATE: 20240301
